FAERS Safety Report 11215351 (Version 1)
Quarter: 2015Q2

REPORT INFORMATION
  Report Type: Spontaneous
  Country: US (occurrence: US)
  Receive Date: 20150624
  Receipt Date: 20150624
  Transmission Date: 20150821
  Serious: No
  Sender: FDA-Public Use
  Company Number: US-PFIZER INC-2015209340

PATIENT
  Age: 83 Year
  Sex: Female
  Weight: 68.93 kg

DRUGS (1)
  1. IBRANCE [Suspect]
     Active Substance: PALBOCICLIB
     Indication: BREAST CANCER
     Dosage: 125 MG, 1X/DAY (DAY 1-21 Q 28)
     Route: 048
     Dates: start: 20150608

REACTIONS (1)
  - Diarrhoea [Recovered/Resolved]
